FAERS Safety Report 5336413-3 (Version None)
Quarter: 2007Q2

REPORT INFORMATION
  Report Type: 
  Country: None (occurrence: None)
  Receive Date: 20070523
  Receipt Date: 20070507
  Transmission Date: 20071010
  Serious: Yes (Hospitalization)
  Sender: FDA-Public Use
  Company Number: DSA_29914_2007

PATIENT
  Sex: Female

DRUGS (2)
  1. TAVOR /00273201/ (TAVOR) 2 MG [Suspect]
     Dosage: 20 MG 1X ORAL
     Route: 048
     Dates: start: 20070505, end: 20070505
  2. ALCOHOL  /00002101/ (WINE) 1 DF [Suspect]
     Dosage: 0.5 DF 1X ORAL
     Route: 048
     Dates: start: 20070505, end: 20070505

REACTIONS (3)
  - ACCIDENTAL OVERDOSE [None]
  - ALCOHOL USE [None]
  - SOMNOLENCE [None]
